FAERS Safety Report 9253367 (Version 3)
Quarter: 2013Q4

REPORT INFORMATION
  Report Type: Spontaneous
  Country: US (occurrence: US)
  Receive Date: 20130425
  Receipt Date: 20131122
  Transmission Date: 20140711
  Serious: Yes (Disabling, Other)
  Sender: FDA-Public Use
  Company Number: US-ASTRAZENECA-2013SE27223

PATIENT
  Age: 51 Year
  Sex: Female
  Weight: 49.9 kg

DRUGS (29)
  1. NEXIUM [Suspect]
     Indication: PHARYNGEAL DISORDER
     Route: 048
     Dates: start: 2002
  2. NEXIUM [Suspect]
     Indication: GASTRIC DISORDER
     Route: 048
     Dates: start: 2002
  3. NEXIUM [Suspect]
     Indication: GASTROOESOPHAGEAL REFLUX DISEASE
     Route: 048
     Dates: start: 2002
  4. NEXIUM [Suspect]
     Indication: PHARYNGEAL DISORDER
     Route: 048
     Dates: start: 20051019
  5. NEXIUM [Suspect]
     Indication: GASTRIC DISORDER
     Route: 048
     Dates: start: 20051019
  6. NEXIUM [Suspect]
     Indication: GASTROOESOPHAGEAL REFLUX DISEASE
     Route: 048
     Dates: start: 20051019
  7. PRILOSEC [Suspect]
     Indication: GASTROOESOPHAGEAL REFLUX DISEASE
     Route: 048
     Dates: start: 1988, end: 2002
  8. PRILOSEC [Suspect]
     Indication: GASTROOESOPHAGEAL REFLUX DISEASE
     Route: 048
     Dates: start: 2002
  9. PREVACID [Concomitant]
     Indication: GASTROOESOPHAGEAL REFLUX DISEASE
     Dates: start: 1988, end: 2002
  10. PEPCID [Concomitant]
     Dates: start: 1988, end: 2002
  11. TAGAMET [Concomitant]
     Dates: start: 1988, end: 2002
  12. CYMBALTA [Concomitant]
     Route: 048
     Dates: start: 20100206
  13. PREDNISONE [Concomitant]
     Route: 048
     Dates: start: 20100206
  14. CALTRATE [Concomitant]
  15. FERROUS SULFATE [Concomitant]
  16. LORTAB [Concomitant]
  17. EFFEXOR XR [Concomitant]
     Route: 048
     Dates: start: 20051104
  18. GRALISE [Concomitant]
     Indication: HYPOAESTHESIA
  19. L-METHFOL/MCCOBAL/B6 [Concomitant]
     Indication: HYPOAESTHESIA
     Dosage: 2-35-3 MG, TWO TIMES A DAY
  20. ZOCOR [Concomitant]
     Indication: BLOOD CHOLESTEROL ABNORMAL
  21. ASPIRIN [Concomitant]
     Indication: PINEAL GLAND CYST
  22. ASPIRIN [Concomitant]
     Indication: CORONARY ARTERY DISEASE
  23. MULTI-VITAMIN [Concomitant]
     Dosage: DAILY
  24. ZOFRAN [Concomitant]
     Indication: NAUSEA
  25. ZOFRAN [Concomitant]
     Indication: VOMITING
  26. MOTILLUM [Concomitant]
     Indication: GASTRIC DISORDER
  27. PHENERGAN [Concomitant]
     Indication: VOMITING
     Dosage: 25MG, EVERY 6 HOURS AS NEEDED
  28. PHENERGAN [Concomitant]
     Indication: NAUSEA
     Dosage: 25MG, EVERY 6 HOURS AS NEEDED
  29. REGLAN [Concomitant]
     Indication: GASTRIC DISORDER

REACTIONS (16)
  - Cataract [Unknown]
  - Anxiety [Unknown]
  - Type 2 diabetes mellitus [Unknown]
  - Osteoporosis [Unknown]
  - Spinal compression fracture [Unknown]
  - Bone disorder [Unknown]
  - Upper limb fracture [Unknown]
  - Fall [Unknown]
  - Blood glucose decreased [Unknown]
  - Arthritis [Unknown]
  - Calcium deficiency [Unknown]
  - Vitamin D deficiency [Unknown]
  - Osteopenia [Unknown]
  - Intervertebral disc degeneration [Unknown]
  - Intervertebral disc protrusion [Unknown]
  - Depression [Unknown]
